FAERS Safety Report 6021953-4 (Version None)
Quarter: 2008Q4

REPORT INFORMATION
  Report Type: 
  Country: None (occurrence: None)
  Receive Date: 20081229
  Receipt Date: 20081215
  Transmission Date: 20090506
  Serious: Yes (Hospitalization, Other)
  Sender: FDA-Public Use
  Company Number: US-ROCHE-601459

PATIENT
  Age: 68 Year
  Sex: Male

DRUGS (14)
  1. CAPECITABINE [Suspect]
     Indication: DRUG USE FOR UNKNOWN INDICATION
     Dosage: PATIENT RECEIVED 4 CYCLES.
     Route: 048
  2. FLUOROURACIL [Suspect]
     Indication: DRUG USE FOR UNKNOWN INDICATION
     Dosage: RECEIVED BOLUS INJECTION UNDER THE ROSWELL PARK REGIMEN.
     Route: 042
  3. FLUOROURACIL [Suspect]
     Dosage: INFUSION
     Route: 065
  4. OXALIPLATIN [Concomitant]
     Dosage: TWO YEARS LATER.
  5. OXALIPLATIN [Concomitant]
     Dosage: FIRST THERAPY, THE PATIENT RECEIVED 4 CYCLES OF ELOXATIN.
  6. LEUCOVORIN CALCIUM [Concomitant]
     Dosage: RECEIVED BOLUS INJECTION UNDER THE ROSWELL PARK REGIMEN.
  7. LEUCOVORIN CALCIUM [Concomitant]
  8. ZOCOR [Concomitant]
  9. ASPIRIN [Concomitant]
  10. LISINOPRIL [Concomitant]
  11. CIMETIDINE [Concomitant]
  12. METOPROLOL [Concomitant]
  13. PAROXETINE [Concomitant]
  14. ALPRAZOLAM [Concomitant]

REACTIONS (2)
  - CARDIOTOXICITY [None]
  - METASTASIS [None]
